FAERS Safety Report 9165870 (Version 1)
Quarter: 2013Q1

REPORT INFORMATION
  Report Type: Spontaneous
  Country: SA (occurrence: None)
  Receive Date: 20130314
  Receipt Date: 20130314
  Transmission Date: 20140127
  Serious: Yes (Hospitalization)
  Sender: FDA-Public Use
  Company Number: None

PATIENT
  Sex: 0

DRUGS (1)
  1. METHOTREXATE [Suspect]
     Indication: LEUKAEMIA
     Dates: start: 20121016

REACTIONS (4)
  - Headache [None]
  - Pyrexia [None]
  - Neutropenia [None]
  - Convulsion [None]
